FAERS Safety Report 7864791-X (Version None)
Quarter: 2011Q4

REPORT INFORMATION
  Report Type: 
  Country: None (occurrence: None)
  Receive Date: 20111028
  Receipt Date: 20101208
  Transmission Date: 20120403
  Serious: No
  Sender: FDA-Public Use
  Company Number: US-GLAXOSMITHKLINE-A0804757A

PATIENT
  Age: 81 Year
  Sex: Male
  Weight: 85 kg

DRUGS (7)
  1. MUCINEX [Concomitant]
  2. PROAIR HFA [Concomitant]
  3. ADVAIR DISKUS 100/50 [Suspect]
     Indication: BRONCHITIS
     Dosage: 1PUFF TWICE PER DAY
     Route: 055
     Dates: start: 20090717, end: 20090822
  4. DOXYCYCLINE [Concomitant]
  5. PREDNISONE [Concomitant]
  6. AZITHROMYCIN [Concomitant]
  7. METHYLPREDNISOLONE [Concomitant]

REACTIONS (10)
  - DYSPHAGIA [None]
  - OROPHARYNGEAL PAIN [None]
  - SPEECH DISORDER [None]
  - THROAT IRRITATION [None]
  - VOCAL CORD DISORDER [None]
  - OROPHARYNGEAL DISCOMFORT [None]
  - COUGH [None]
  - LARYNGITIS [None]
  - DYSPHONIA [None]
  - DRY THROAT [None]
